FAERS Safety Report 13707280 (Version 3)
Quarter: 2017Q4

REPORT INFORMATION
  Report Type: Spontaneous
  Country: US (occurrence: US)
  Receive Date: 20170630
  Receipt Date: 20171016
  Transmission Date: 20180320
  Serious: Yes (Other)
  Sender: FDA-Public Use
  Company Number: US-SA-2017SA114264

PATIENT
  Age: 50 Year
  Sex: Female
  Weight: 90.72 kg

DRUGS (9)
  1. ADRIAMYCIN [Concomitant]
     Active Substance: DOXORUBICIN HYDROCHLORIDE
  2. DOXIL [Concomitant]
     Active Substance: DOXORUBICIN HYDROCHLORIDE
  3. TAXOTERE [Suspect]
     Active Substance: DOCETAXEL
     Indication: BREAST CANCER STAGE III
     Route: 051
     Dates: start: 20070730, end: 20070730
  4. TAMOXIFEN [Concomitant]
     Active Substance: TAMOXIFEN
     Route: 065
     Dates: start: 200805, end: 200909
  5. ALOXI [Concomitant]
     Active Substance: PALONOSETRON HYDROCHLORIDE
  6. ZOLADEX [Concomitant]
     Active Substance: GOSERELIN ACETATE
     Route: 065
     Dates: start: 201006
  7. NEOSAR [Concomitant]
     Active Substance: CYCLOPHOSPHAMIDE
  8. TAXOTERE [Suspect]
     Active Substance: DOCETAXEL
     Indication: BREAST CANCER STAGE III
     Route: 051
     Dates: start: 20071008, end: 20071008
  9. FEMARA [Concomitant]
     Active Substance: LETROZOLE
     Route: 065
     Dates: start: 201006

REACTIONS (5)
  - Alopecia [Not Recovered/Not Resolved]
  - Impaired quality of life [Unknown]
  - Pain [Unknown]
  - Anxiety [Unknown]
  - Emotional distress [Unknown]
